FAERS Safety Report 7444959-7 (Version None)
Quarter: 2011Q2

REPORT INFORMATION
  Report Type: 
  Country: None (occurrence: None)
  Receive Date: 20110429
  Receipt Date: 20110418
  Transmission Date: 20111010
  Serious: Yes (Other)
  Sender: FDA-Public Use
  Company Number: PHHY2009CA19623

PATIENT
  Sex: Female

DRUGS (14)
  1. VITAMIN D [Concomitant]
  2. AVAPRO [Concomitant]
  3. APRATIA [Concomitant]
  4. GLUMETZA [Concomitant]
     Indication: DIABETES MELLITUS
     Dosage: UNK
  5. SANDOSTATIN LAR [Suspect]
     Indication: ACROMEGALY
     Dosage: 30 MG, EVERY 4 WEEKS
     Route: 030
     Dates: start: 20070712
  6. LIPITOR [Concomitant]
  7. GAVISCON [Concomitant]
  8. ATIVAN [Concomitant]
  9. SANDOSTATIN LAR [Suspect]
     Dosage: 10 MG, BIW
     Route: 030
  10. SYNTHROID [Concomitant]
  11. SANDOSTATIN LAR [Suspect]
     Dosage: 20 MG, EVERY 4 WEEKS
     Route: 030
  12. SANDOSTATIN LAR [Suspect]
     Dosage: 10 MG, QMO
     Route: 030
  13. NEXIUM [Concomitant]
  14. ASPIRIN [Concomitant]

REACTIONS (24)
  - BLOOD PRESSURE INCREASED [None]
  - MALAISE [None]
  - HEADACHE [None]
  - NEOPLASM PROGRESSION [None]
  - CRYING [None]
  - ACCIDENT AT WORK [None]
  - BACK PAIN [None]
  - ARRHYTHMIA [None]
  - NAUSEA [None]
  - INJECTION SITE PAIN [None]
  - ABDOMINAL DISTENSION [None]
  - CONTUSION [None]
  - GASTROOESOPHAGEAL REFLUX DISEASE [None]
  - MIGRAINE [None]
  - DIARRHOEA [None]
  - ABDOMINAL PAIN UPPER [None]
  - BLOOD GLUCOSE INCREASED [None]
  - NASOPHARYNGITIS [None]
  - FATIGUE [None]
  - PALPITATIONS [None]
  - FALL [None]
  - TREMOR [None]
  - ASTHENIA [None]
  - BLOOD GLUCOSE DECREASED [None]
